FAERS Safety Report 13839872 (Version 1)
Quarter: 2017Q3

REPORT INFORMATION
  Report Type: Spontaneous
  Country: US (occurrence: US)
  Receive Date: 20170807
  Receipt Date: 20170807
  Transmission Date: 20171127
  Serious: No
  Sender: FDA-Public Use
  Company Number: US-GLAXOSMITHKLINE-US2017117763

PATIENT
  Age: 66 Year
  Sex: Male

DRUGS (1)
  1. VOLTAREN [Suspect]
     Active Substance: DICLOFENAC SODIUM
     Indication: ARTHRALGIA
     Dosage: UNK
     Dates: start: 201706, end: 20170725

REACTIONS (3)
  - Discomfort [Recovering/Resolving]
  - Off label use [Unknown]
  - Groin pain [Recovering/Resolving]

NARRATIVE: CASE EVENT DATE: 20170721
